FAERS Safety Report 7459796-7 (Version None)
Quarter: 2011Q2

REPORT INFORMATION
  Report Type: 
  Country: None (occurrence: None)
  Receive Date: 20110505
  Receipt Date: 20110429
  Transmission Date: 20111010
  Serious: Yes (Life-Threatening)
  Sender: FDA-Public Use
  Company Number: PT-PFIZER INC-2011092453

PATIENT
  Age: 72 Year
  Sex: Female

DRUGS (9)
  1. PANTOPRAZOLE [Concomitant]
     Dosage: UNK
     Route: 042
  2. MAGNESIUM SULFATE [Concomitant]
  3. ECALTA [Suspect]
     Indication: CHOLECYSTITIS
  4. ISONIAZID [Concomitant]
     Indication: ANTIBIOTIC PROPHYLAXIS
  5. PYRIDOXINE [Concomitant]
  6. ECALTA [Suspect]
     Indication: CHOLANGITIS
  7. LEVETIRACETAM [Concomitant]
     Indication: EPILEPSY
  8. ECALTA [Suspect]
     Indication: SEPTIC SHOCK
     Dosage: 200 MG, SINGLE
     Route: 042
     Dates: start: 20110426, end: 20110426
  9. ACETAMINOPHEN [Concomitant]

REACTIONS (2)
  - ANAPHYLACTIC REACTION [None]
  - ERYTHEMA [None]
